FAERS Safety Report 4995871-4 (Version None)
Quarter: 2006Q2

REPORT INFORMATION
  Report Type: 
  Country: None (occurrence: None)
  Receive Date: 20060504
  Receipt Date: 20060412
  Transmission Date: 20061013
  Serious: Yes (Death, Life-Threatening)
  Sender: FDA-Public Use
  Company Number: JPKYO-S-20060018

PATIENT
  Age: 71 Year
  Sex: Male

DRUGS (11)
  1. NAVELBINE [Suspect]
     Indication: LUNG NEOPLASM MALIGNANT
     Dates: start: 20050825, end: 20050915
  2. VOLTAREN [Suspect]
     Indication: RHEUMATOID ARTHRITIS
     Dates: start: 20050825, end: 20050915
  3. PREDONINE [Suspect]
     Indication: RHEUMATOID ARTHRITIS
     Dates: end: 20051007
  4. RIMATIL [Suspect]
     Dates: end: 20051007
  5. AMLODIN [Concomitant]
  6. BLOPRESS [Concomitant]
  7. RIMATIL [Concomitant]
  8. PREDONINE [Concomitant]
  9. GLUFAST [Concomitant]
  10. SELBEX [Concomitant]
  11. ALLOID [Concomitant]

REACTIONS (13)
  - CONDITION AGGRAVATED [None]
  - DISSEMINATED INTRAVASCULAR COAGULATION [None]
  - FATIGUE [None]
  - GASTRIC ULCER [None]
  - GASTROINTESTINAL HAEMORRHAGE [None]
  - HAEMOGLOBIN DECREASED [None]
  - MELAENA [None]
  - PNEUMOCYSTIS JIROVECI PNEUMONIA [None]
  - PO2 DECREASED [None]
  - PYREXIA [None]
  - THERAPY NON-RESPONDER [None]
  - WHITE BLOOD CELL COUNT DECREASED [None]
  - WHITE BLOOD CELL COUNT INCREASED [None]
